FAERS Safety Report 20167611 (Version 9)
Quarter: 2022Q1

REPORT INFORMATION
  Report Type: Spontaneous
  Country: JP (occurrence: JP)
  Receive Date: 20211209
  Receipt Date: 20220316
  Transmission Date: 20220423
  Serious: Yes (Hospitalization, Other)
  Sender: FDA-Public Use
  Company Number: JP-ONO-2021JP030999

PATIENT
  Age: 71 Year
  Sex: Male
  Weight: 54.5 kg

DRUGS (17)
  1. OPDIVO [Suspect]
     Active Substance: NIVOLUMAB
     Indication: Non-small cell lung cancer recurrent
     Dosage: 360 MILLIGRAM
     Route: 041
     Dates: start: 20210219, end: 20210219
  2. OPDIVO [Suspect]
     Active Substance: NIVOLUMAB
     Dosage: MAINTENANCE THERAPY
     Route: 041
     Dates: start: 20210402
  3. YERVOY [Suspect]
     Active Substance: IPILIMUMAB
     Indication: Non-small cell lung cancer recurrent
     Dosage: 57.6 MILLIGRAM
     Route: 041
     Dates: start: 20210219, end: 20210219
  4. YERVOY [Suspect]
     Active Substance: IPILIMUMAB
     Dosage: MAINTENANCE THERAPY
     Route: 041
     Dates: start: 20210402
  5. YERVOY [Suspect]
     Active Substance: IPILIMUMAB
     Dosage: 57.6 MG
     Route: 041
     Dates: start: 20210219, end: 20210402
  6. CARBOPLATIN [Suspect]
     Active Substance: CARBOPLATIN
     Indication: Non-small cell lung cancer recurrent
     Dosage: UNK
     Route: 065
     Dates: start: 20210219
  7. CARBOPLATIN [Suspect]
     Active Substance: CARBOPLATIN
     Dosage: UNK
     Route: 065
     Dates: start: 202105
  8. CARBOPLATIN [Suspect]
     Active Substance: CARBOPLATIN
     Dosage: 715 MILLIGRAM
     Route: 041
     Dates: start: 20210430, end: 20211116
  9. PEMETREXED DISODIUM [Suspect]
     Active Substance: PEMETREXED DISODIUM
     Indication: Non-small cell lung cancer recurrent
     Dosage: UNK
     Route: 065
     Dates: start: 20210219
  10. PEMETREXED DISODIUM [Suspect]
     Active Substance: PEMETREXED DISODIUM
     Dosage: UNK
     Route: 065
     Dates: start: 202105
  11. PEMETREXED DISODIUM [Suspect]
     Active Substance: PEMETREXED DISODIUM
     Dosage: 867.5 MILLIGRAM
     Route: 041
     Dates: start: 20210430, end: 20211116
  12. PANVITAN [ASCORBIC ACID;CALCIUM PANTOTHENATE;CYANOCOBALAMIN;ERGOCALCIF [Concomitant]
     Indication: Prophylaxis
     Dosage: 1 GRAM
     Route: 048
     Dates: start: 20210501
  13. NAFTOPIDIL [Concomitant]
     Active Substance: NAFTOPIDIL
     Indication: Product used for unknown indication
     Dosage: 75 MILLIGRAM
     Route: 048
  14. NAFTOPIDIL [Concomitant]
     Active Substance: NAFTOPIDIL
     Dosage: 75 MG, EVERYDAY
     Route: 048
  15. EDOXABAN TOSYLATE [Concomitant]
     Active Substance: EDOXABAN TOSYLATE
     Indication: Product used for unknown indication
     Dosage: 30 MILLIGRAM
     Route: 048
  16. EDOXABAN TOSYLATE [Concomitant]
     Active Substance: EDOXABAN TOSYLATE
     Dosage: 30 MG, EVERYDAY
     Route: 048
  17. BIO-THREE [Concomitant]
     Active Substance: HERBALS
     Indication: Prophylaxis
     Dosage: 2 TABLETS (NUMBERS OF ADMINISTRATION: 3)
     Route: 048
     Dates: start: 20210526

REACTIONS (4)
  - Immune-mediated enterocolitis [Recovering/Resolving]
  - Bronchopulmonary aspergillosis [Recovering/Resolving]
  - Malignant neoplasm progression [Unknown]
  - Cytomegalovirus colitis [Recovering/Resolving]

NARRATIVE: CASE EVENT DATE: 20210401
